FAERS Safety Report 12408973 (Version 1)
Quarter: 2016Q2

REPORT INFORMATION
  Report Type: Spontaneous
  Country: US (occurrence: US)
  Receive Date: 20160526
  Receipt Date: 20160526
  Transmission Date: 20160815
  Serious: No
  Sender: FDA-Public Use
  Company Number: US-GLAXOSMITHKLINE-US2016GSK073326

PATIENT
  Age: 28 Year
  Sex: Female
  Weight: 49.89 kg

DRUGS (1)
  1. WELLBUTRIN XL [Suspect]
     Active Substance: BUPROPION HYDROCHLORIDE
     Indication: DEPRESSION
     Dosage: 150 MG, TID
     Route: 048
     Dates: start: 2014

REACTIONS (2)
  - Live birth [Unknown]
  - Exposure during pregnancy [Unknown]
